FAERS Safety Report 23337436 (Version 1)
Quarter: 2023Q4

REPORT INFORMATION
  Report Type: Other
  Country: FR (occurrence: None)
  Receive Date: 20231226
  Receipt Date: 20231226
  Transmission Date: 20240109
  Serious: Yes (Other)
  Sender: FDA-Public Use
  Company Number: FR-ROCHE-3479221

PATIENT

DRUGS (3)
  1. BEVACIZUMAB [Suspect]
     Active Substance: BEVACIZUMAB
     Indication: Glioblastoma
     Route: 065
  2. TEMOZOLOMIDE [Suspect]
     Active Substance: TEMOZOLOMIDE
     Indication: Glioblastoma
     Route: 065
  3. CARMUSTINE [Suspect]
     Active Substance: CARMUSTINE
     Indication: Glioblastoma
     Route: 065

REACTIONS (14)
  - Haemorrhage intracranial [Unknown]
  - Embolism venous [Unknown]
  - Thrombocytopenia [Unknown]
  - Neutropenia [Unknown]
  - Lymphopenia [Unknown]
  - Anaemia [Unknown]
  - Infection [Unknown]
  - Hypertension [Unknown]
  - Fatigue [Unknown]
  - Spinal compression fracture [Unknown]
  - Rib fracture [Unknown]
  - Haemorrhage [Unknown]
  - Wound dehiscence [Unknown]
  - Cognitive disorder [Unknown]
